FAERS Safety Report 7468272-7 (Version None)
Quarter: 2011Q2

REPORT INFORMATION
  Report Type: 
  Country: None (occurrence: None)
  Receive Date: 20110509
  Receipt Date: 20110426
  Transmission Date: 20111010
  Serious: Yes (Hospitalization)
  Sender: FDA-Public Use
  Company Number: CA-CELGENEUS-028-20785-11043445

PATIENT
  Sex: Male

DRUGS (1)
  1. THALOMID [Suspect]
     Dosage: 150 MILLIGRAM
     Dates: start: 20100112

REACTIONS (3)
  - DIABETES MELLITUS [None]
  - SKIN FISSURES [None]
  - LOBAR PNEUMONIA [None]
